FAERS Safety Report 15203400 (Version 1)
Quarter: 2018Q3

REPORT INFORMATION
  Report Type: Spontaneous
  Country: ES (occurrence: ES)
  Receive Date: 20180726
  Receipt Date: 20180726
  Transmission Date: 20181010
  Serious: Yes (Other)
  Sender: FDA-Public Use
  Company Number: ES-DSJP-DSE-2018-134065

PATIENT

DRUGS (1)
  1. BALZAK [Suspect]
     Active Substance: AMLODIPINE BESYLATE\OLMESARTAN MEDOXOMIL
     Indication: HYPERTENSION
     Dosage: 40/5 MG, QD
     Route: 048
     Dates: start: 20180412, end: 201806

REACTIONS (5)
  - Confusional state [Unknown]
  - Disorientation [Unknown]
  - Sleep disorder [Unknown]
  - Abnormal sleep-related event [Unknown]
  - Nightmare [Unknown]

NARRATIVE: CASE EVENT DATE: 20180418
